FAERS Safety Report 7943984-7 (Version None)
Quarter: 2011Q4

REPORT INFORMATION
  Report Type: 
  Country: None (occurrence: None)
  Receive Date: 20111128
  Receipt Date: 20111117
  Transmission Date: 20120403
  Serious: Yes (Death, Life-Threatening, Hospitalization, Other)
  Sender: FDA-Public Use
  Company Number: US-RB-034524-11

PATIENT
  Sex: Male

DRUGS (1)
  1. SUBOXONE [Suspect]
     Indication: DRUG DEPENDENCE
     Route: 060
     Dates: start: 20090709, end: 20111001

REACTIONS (11)
  - CONDITION AGGRAVATED [None]
  - PYREXIA [None]
  - SEPSIS [None]
  - PANCREATITIS CHRONIC [None]
  - ABSCESS LIMB [None]
  - SKIN ULCER [None]
  - RENAL FAILURE [None]
  - WHITE BLOOD CELL COUNT INCREASED [None]
  - RESPIRATORY ARREST [None]
  - CELLULITIS [None]
  - DEEP VEIN THROMBOSIS [None]
